FAERS Safety Report 14098225 (Version 1)
Quarter: 2017Q4

REPORT INFORMATION
  Report Type: Spontaneous
  Country: JP (occurrence: JP)
  Receive Date: 20171017
  Receipt Date: 20171017
  Transmission Date: 20180321
  Serious: Yes (Hospitalization)
  Sender: FDA-Public Use
  Company Number: JP-ALLERGAN-1757926US

PATIENT
  Age: 90 Year
  Sex: Male
  Weight: 54 kg

DRUGS (10)
  1. AMOBAN [Concomitant]
     Active Substance: ZOPICLONE
     Dosage: UNK
     Dates: start: 20121206
  2. PLETAAL [Concomitant]
     Active Substance: CILOSTAZOL
     Dosage: UNK
  3. CILOSTAZOL. [Concomitant]
     Active Substance: CILOSTAZOL
     Indication: VASCULAR DEMENTIA
     Dosage: UNK
     Dates: start: 20120105, end: 20170809
  4. ROZEREM [Concomitant]
     Active Substance: RAMELTEON
     Dosage: UNK
     Dates: start: 20130722
  5. MEMANTINE HCL - BP [Suspect]
     Active Substance: MEMANTINE
     Indication: VASCULAR DEMENTIA
     Dosage: 5 MG, QD
     Route: 048
     Dates: start: 20170810, end: 20170817
  6. REMINYL [Concomitant]
     Active Substance: GALANTAMINE
     Indication: VASCULAR DEMENTIA
     Dosage: UNK
     Dates: start: 20140526, end: 20170809
  7. AMLODIPINE BESILATE [Concomitant]
     Active Substance: AMLODIPINE BESYLATE
     Dosage: UNK
     Dates: start: 20150701
  8. AMARYL [Concomitant]
     Active Substance: GLIMEPIRIDE
     Dosage: UNK
     Dates: start: 20120127
  9. YOKUKANSAN [Concomitant]
     Active Substance: HERBALS
     Indication: VASCULAR DEMENTIA
     Dosage: UNK
     Dates: start: 20120329
  10. MICARDIS [Concomitant]
     Active Substance: TELMISARTAN
     Dosage: UNK
     Dates: start: 20141029

REACTIONS (3)
  - Liver disorder [Recovered/Resolved]
  - Off label use [Unknown]
  - Jaundice [Recovered/Resolved]

NARRATIVE: CASE EVENT DATE: 20170810
